FAERS Safety Report 4914343-6 (Version None)
Quarter: 2006Q1

REPORT INFORMATION
  Report Type: 
  Country: None (occurrence: None)
  Receive Date: 20060213
  Receipt Date: 20060202
  Transmission Date: 20060701
  Serious: Yes (Life-Threatening, Hospitalization, Other)
  Sender: FDA-Public Use
  Company Number: 2005-06-0938

PATIENT
  Age: 44 Year
  Sex: Male
  Weight: 111.1313 kg

DRUGS (17)
  1. PEG-INTRON [Suspect]
     Indication: HEPATITIS C
     Dosage: 150-75 MCG, QWK; SUBCUTANEOUS
     Route: 058
     Dates: start: 20050304, end: 20050614
  2. PEG-INTRON [Suspect]
     Indication: HEPATITIS C
     Dosage: 150-75 MCG, QWK; SUBCUTANEOUS
     Route: 058
     Dates: start: 20050304, end: 20050701
  3. PEG-INTRON [Suspect]
     Indication: HEPATITIS C
     Dosage: 150-75 MCG, QWK; SUBCUTANEOUS
     Route: 058
     Dates: start: 20050614, end: 20050701
  4. REBETOL [Suspect]
     Indication: HEPATITIS C
     Dosage: 1200-800 MG, QD; ORAL
     Route: 048
     Dates: start: 20050304, end: 20050614
  5. REBETOL [Suspect]
     Indication: HEPATITIS C
     Dosage: 1200-800 MG, QD; ORAL
     Route: 048
     Dates: start: 20050304, end: 20050701
  6. REBETOL [Suspect]
     Indication: HEPATITIS C
     Dosage: 1200-800 MG, QD; ORAL
     Route: 048
     Dates: start: 20050614, end: 20050701
  7. EFFEXOR XR [Suspect]
     Indication: ANXIETY
     Dosage: 75 MG QD; ORAL
     Route: 048
     Dates: start: 20050215, end: 20050331
  8. EFFEXOR XR [Suspect]
     Indication: COLD SWEAT
     Dosage: 75 MG QD; ORAL
     Route: 048
     Dates: start: 20050215, end: 20050331
  9. XANAX [Suspect]
     Indication: ANXIETY
     Dosage: 0.25-1.5 MG, D; ORAL
     Route: 048
     Dates: start: 20050331, end: 20050407
  10. XANAX [Suspect]
     Indication: ANXIETY
     Dosage: 0.25-1.5 MG, D; ORAL
     Route: 048
     Dates: start: 20050407, end: 20050412
  11. XANAX [Suspect]
     Indication: ANXIETY
     Dosage: 0.25-1.5 MG, D; ORAL
     Route: 048
     Dates: start: 20050331, end: 20050614
  12. XANAX [Suspect]
     Indication: ANXIETY
     Dosage: 0.25-1.5 MG, D; ORAL
     Route: 048
     Dates: start: 20050412, end: 20050614
  13. XANAX [Suspect]
     Indication: ANXIETY
     Dosage: 0.25-1.5 MG, D; ORAL
     Route: 048
     Dates: start: 20050412, end: 20050614
  14. XANAX [Suspect]
     Indication: ANXIETY
     Dosage: 0.25-1.5 MG, D; ORAL
     Route: 048
     Dates: start: 20050601
  15. KLONOPIN [Suspect]
     Indication: DRUG USE FOR UNKNOWN INDICATION
     Dosage: 3 MG
     Dates: start: 20050614, end: 20050901
  16. XANAX [Suspect]
     Indication: ANXIETY
     Dosage: 1 MG HS, PRN; ORAL, 3MG ORAL
     Route: 048
     Dates: start: 20050412, end: 20050614
  17. XANAX [Suspect]
     Indication: ANXIETY
     Dosage: 1 MG HS, PRN; ORAL, 3MG ORAL
     Route: 048
     Dates: start: 20050601

REACTIONS (43)
  - ABDOMINAL PAIN LOWER [None]
  - AGITATION [None]
  - ALCOHOL USE [None]
  - AMNESIA [None]
  - ANXIETY [None]
  - BODY TEMPERATURE INCREASED [None]
  - BRAIN OEDEMA [None]
  - CLAVICLE FRACTURE [None]
  - CONCUSSION [None]
  - CONDITION AGGRAVATED [None]
  - CONVULSION [None]
  - DISSOCIATIVE IDENTITY DISORDER [None]
  - DIZZINESS [None]
  - DRY MOUTH [None]
  - DYSARTHRIA [None]
  - DYSPNOEA [None]
  - FALL [None]
  - FEELING ABNORMAL [None]
  - FEELING HOT AND COLD [None]
  - HEAD INJURY [None]
  - HEART RATE INCREASED [None]
  - HEPATITIS C [None]
  - HYPERHIDROSIS [None]
  - IMPAIRED DRIVING ABILITY [None]
  - IMPRISONMENT [None]
  - LOSS OF CONSCIOUSNESS [None]
  - OVERDOSE [None]
  - PAIN [None]
  - PAIN IN EXTREMITY [None]
  - PANIC ATTACK [None]
  - PHARYNGEAL OEDEMA [None]
  - RED BLOOD CELL COUNT DECREASED [None]
  - RESTLESSNESS [None]
  - RIB FRACTURE [None]
  - ROAD TRAFFIC ACCIDENT [None]
  - SELF-MEDICATION [None]
  - SHOULDER PAIN [None]
  - TREATMENT NONCOMPLIANCE [None]
  - UNEVALUABLE EVENT [None]
  - UPPER RESPIRATORY TRACT INFECTION [None]
  - WEIGHT DECREASED [None]
  - WHEEZING [None]
  - WHITE BLOOD CELL COUNT DECREASED [None]
